FAERS Safety Report 7484995-8 (Version None)
Quarter: 2011Q2

REPORT INFORMATION
  Report Type: 
  Country: None (occurrence: None)
  Receive Date: 20110517
  Receipt Date: 20101007
  Transmission Date: 20111010
  Serious: No
  Sender: FDA-Public Use
  Company Number: US-BAYER-201022979BCC

PATIENT
  Age: 50 Year
  Sex: Female
  Weight: 88.636 kg

DRUGS (2)
  1. ALEVE [Suspect]
     Indication: MIGRAINE
     Dosage: 4 DF, UNK
     Route: 048
     Dates: start: 20101006, end: 20101007
  2. LEVOTHYROXINE SODIUM [Concomitant]

REACTIONS (1)
  - NO ADVERSE EVENT [None]
